FAERS Safety Report 9616858 (Version 2)
Quarter: 2013Q4

REPORT INFORMATION
  Report Type: Report from Study
  Country: DE (occurrence: DE)
  Receive Date: 20131011
  Receipt Date: 20131011
  Transmission Date: 20140711
  Serious: Yes (Death, Other)
  Sender: FDA-Public Use
  Company Number: DE-ABBVIE-12P-062-0984550-00

PATIENT
  Age: 91 Year
  Sex: Male
  Weight: 59 kg

DRUGS (3)
  1. TRENANTONE [Suspect]
     Indication: PROSTATE CANCER
     Route: 058
     Dates: start: 20111101, end: 20120412
  2. TRENANTONE [Suspect]
     Route: 058
     Dates: start: 20120925, end: 20120925
  3. AGENTS ACTING ON THE RENIN-ANGIOTENSIN SYSTEM [Suspect]
     Indication: PRODUCT USED FOR UNKNOWN INDICATION
     Route: 065

REACTIONS (3)
  - Cardiac failure [Fatal]
  - Blood creatinine increased [Not Recovered/Not Resolved]
  - Haemoglobin decreased [Unknown]
